FAERS Safety Report 4317319-5 (Version None)
Quarter: 2004Q1

REPORT INFORMATION
  Report Type: 
  Country: None (occurrence: None)
  Receive Date: 20040312
  Receipt Date: 20040226
  Transmission Date: 20041129
  Serious: Yes (Hospitalization, Other)
  Sender: FDA-Public Use
  Company Number: 001#1#2004-00038

PATIENT
  Age: 68 Year
  Sex: Female

DRUGS (5)
  1. PROSTAVASIN-OHNE-DOSIS (ALPROSTADIL (PAOD)) [Suspect]
     Indication: PERIPHERAL VASCULAR DISORDER
     Dosage: 1.2 X 1 AMPULE IN 250 ML NACL INTRAVENOUS DRIP
     Route: 041
  2. ... [Suspect]
  3. ... [Suspect]
  4. ... [Suspect]
  5. /// [Concomitant]

REACTIONS (3)
  - ARRHYTHMIA [None]
  - DIARRHOEA [None]
  - RESTLESSNESS [None]
